FAERS Safety Report 9009890 (Version 1)
Quarter: 2013Q1

REPORT INFORMATION
  Report Type: Report from Study
  Country: US (occurrence: US)
  Receive Date: 20130110
  Receipt Date: 20130110
  Transmission Date: 20140127
  Serious: Yes (Other)
  Sender: FDA-Public Use
  Company Number: US-GENZYME-LEUK-1000076

PATIENT
  Age: 47 Year
  Sex: Female
  Weight: 90.4 kg

DRUGS (12)
  1. LEUKINE [Suspect]
     Indication: MALIGNANT MELANOMA
     Dosage: 250 MCG/ 24 HR
     Route: 058
     Dates: start: 20110221
  2. LEUKINE [Suspect]
     Dosage: 250 MCG/24 HR
     Route: 058
     Dates: start: 20110411
  3. LEUKINE [Suspect]
     Dosage: 250 MCG/24 HR
     Route: 058
     Dates: start: 20110502
  4. LEUKINE [Suspect]
     Dosage: 250 MCG/24HR
     Route: 058
     Dates: start: 20110502, end: 20110515
  5. LEUKINE [Suspect]
     Dosage: 250 MCG, QD / ON DAYS 1-14(MAINTENENCE THERAPY)
     Route: 058
  6. IPILIMUMAB [Suspect]
     Indication: MALIGNANT MELANOMA
     Dosage: 10 MG/KGV OVER 90 MIN ON DAY 1 Q 12 WEEKS
     Route: 042
     Dates: start: 20110221
  7. IPILIMUMAB [Suspect]
     Dosage: 10 MG/KG, OVER 90 MIN ON DAY 1 Q 12 WEEKS (MAINTENENCE THERAPY)
     Route: 042
  8. METOPROLOL [Concomitant]
     Indication: PRODUCT USED FOR UNKNOWN INDICATION
     Dosage: UNK
     Route: 065
  9. AMARYL [Concomitant]
     Indication: PRODUCT USED FOR UNKNOWN INDICATION
     Dosage: UNK
     Route: 065
  10. LASIX [Concomitant]
     Indication: PRODUCT USED FOR UNKNOWN INDICATION
     Dosage: UNK
     Route: 065
  11. PRAVASTATIN [Concomitant]
     Indication: PRODUCT USED FOR UNKNOWN INDICATION
     Dosage: UNK
     Route: 065
  12. MICRO-K [Concomitant]
     Indication: PRODUCT USED FOR UNKNOWN INDICATION
     Dosage: UNK
     Route: 065

REACTIONS (6)
  - Platelet count decreased [Not Recovered/Not Resolved]
  - Vomiting [Recovered/Resolved]
  - Decreased appetite [Recovered/Resolved]
  - Vomiting [Recovered/Resolved]
  - Nausea [Recovered/Resolved]
  - Diarrhoea [Recovered/Resolved]
